FAERS Safety Report 13621912 (Version 1)
Quarter: 2017Q2

REPORT INFORMATION
  Report Type: Spontaneous
  Country: US (occurrence: US)
  Receive Date: 20170607
  Receipt Date: 20170607
  Transmission Date: 20170830
  Serious: No
  Sender: FDA-Public Use
  Company Number: US-ROCHE-1818105

PATIENT
  Sex: Male

DRUGS (3)
  1. XELODA [Suspect]
     Active Substance: CAPECITABINE
     Indication: COLORECTAL CANCER METASTATIC
     Route: 065
     Dates: start: 2012
  2. NINTEDANIB [Concomitant]
     Active Substance: NINTEDANIB
     Indication: COLORECTAL CANCER METASTATIC
  3. XELODA [Suspect]
     Active Substance: CAPECITABINE
     Dosage: 500 MG 4 PILLS IN THE MORN AND 4 PILLS IN THE EVE
     Route: 065

REACTIONS (5)
  - Drug ineffective [Unknown]
  - Diarrhoea [Unknown]
  - Constipation [Unknown]
  - Palmar-plantar erythrodysaesthesia syndrome [Unknown]
  - Nausea [Unknown]
